FAERS Safety Report 5046438-3 (Version None)
Quarter: 2006Q3

REPORT INFORMATION
  Report Type: 
  Country: None (occurrence: None)
  Receive Date: 20060710
  Receipt Date: 20060703
  Transmission Date: 20061208
  Serious: Yes (Hospitalization)
  Sender: FDA-Public Use
  Company Number: US-GLAXOSMITHKLINE-A0611476A

PATIENT
  Age: 19 Year
  Sex: Male

DRUGS (1)
  1. PAXIL [Suspect]
     Indication: ANXIETY
     Dates: start: 19930101

REACTIONS (41)
  - AGITATION [None]
  - AGORAPHOBIA [None]
  - CARDIAC MURMUR [None]
  - CHEST PAIN [None]
  - CRYING [None]
  - DELUSION [None]
  - DEPERSONALISATION [None]
  - DEPRESSION [None]
  - DIZZINESS [None]
  - DRUG WITHDRAWAL SYNDROME [None]
  - HALLUCINATION [None]
  - HALLUCINATION, AUDITORY [None]
  - HYPERSOMNIA [None]
  - HYPOAESTHESIA [None]
  - INSOMNIA [None]
  - IRRITABILITY [None]
  - MALAISE [None]
  - MANIA [None]
  - MIGRAINE [None]
  - NAUSEA [None]
  - NERVOUSNESS [None]
  - NIGHT SWEATS [None]
  - NIGHTMARE [None]
  - OBSESSIVE-COMPULSIVE DISORDER [None]
  - OVERDOSE [None]
  - PALPITATIONS [None]
  - PARAESTHESIA [None]
  - PARANOIA [None]
  - PROSTATE EXAMINATION ABNORMAL [None]
  - PSYCHOTIC DISORDER [None]
  - SCHIZOPHRENIA [None]
  - SELF MUTILATION [None]
  - SENSORY DISTURBANCE [None]
  - SLEEP TERROR [None]
  - SUICIDAL IDEATION [None]
  - SUICIDE ATTEMPT [None]
  - SYNCOPE [None]
  - TINNITUS [None]
  - TRICHOTILLOMANIA [None]
  - VISUAL DISTURBANCE [None]
  - VOMITING [None]
